FAERS Safety Report 7783492-X (Version None)
Quarter: 2011Q3

REPORT INFORMATION
  Report Type: 
  Country: None (occurrence: None)
  Receive Date: 20110928
  Receipt Date: 20110502
  Transmission Date: 20111222
  Serious: No
  Sender: FDA-Public Use
  Company Number: US-MYLANLABS-2011S1009129

PATIENT
  Sex: Male

DRUGS (3)
  1. RANITIDINE HCL [Suspect]
     Indication: ANTACID THERAPY
  2. PEPCID [Concomitant]
  3. PLAVIX [Suspect]

REACTIONS (1)
  - DRUG INTERACTION [None]
